FAERS Safety Report 7528349-4 (Version None)
Quarter: 2011Q2

REPORT INFORMATION
  Report Type: 
  Country: None (occurrence: None)
  Receive Date: 20110607
  Receipt Date: 20100714
  Transmission Date: 20111010
  Serious: No
  Sender: FDA-Public Use
  Company Number: US-ASTRAZENECA-2010SE31466

PATIENT
  Age: 73 Year
  Sex: Male

DRUGS (5)
  1. PRILOSEC OTC [Suspect]
     Indication: GASTROOESOPHAGEAL REFLUX DISEASE
     Route: 048
     Dates: start: 20080101, end: 20100501
  2. NIASPAN [Concomitant]
     Indication: CARDIAC DISORDER
     Route: 048
  3. PRILOSEC OTC [Suspect]
     Indication: GASTRIC ULCER
     Route: 048
     Dates: start: 20080101, end: 20100501
  4. EFECIENT [Concomitant]
     Route: 048
  5. VYTORIN [Concomitant]
     Route: 048

REACTIONS (2)
  - LOWER LIMB FRACTURE [None]
  - INCORRECT DRUG ADMINISTRATION DURATION [None]
